FAERS Safety Report 7525796-1 (Version None)
Quarter: 2011Q2

REPORT INFORMATION
  Report Type: 
  Country: None (occurrence: None)
  Receive Date: 20110606
  Receipt Date: 20110217
  Transmission Date: 20111010
  Serious: No
  Sender: FDA-Public Use
  Company Number: A0915121A

PATIENT

DRUGS (2)
  1. LAMOTRIGINE [Suspect]
  2. LOVAZA [Concomitant]

REACTIONS (1)
  - DRUG INEFFECTIVE [None]
